FAERS Safety Report 7481148-4 (Version None)
Quarter: 2011Q2

REPORT INFORMATION
  Report Type: 
  Country: None (occurrence: None)
  Receive Date: 20110516
  Receipt Date: 20110504
  Transmission Date: 20111010
  Serious: Yes (Hospitalization, Other)
  Sender: FDA-Public Use
  Company Number: PHHY2011US39335

PATIENT
  Age: 63 Year
  Sex: Female

DRUGS (5)
  1. MIRALAX [Concomitant]
  2. DEPAKOTE [Concomitant]
     Dosage: 1500 MG, UNK
  3. CLOZARIL [Suspect]
     Dosage: 2X2 DAYS
  4. PRILOSEC [Concomitant]
  5. CAFFEINE [Concomitant]

REACTIONS (2)
  - ANTIPSYCHOTIC DRUG LEVEL INCREASED [None]
  - POISONING [None]
